FAERS Safety Report 10471836 (Version 1)
Quarter: 2014Q3

REPORT INFORMATION
  Report Type: Spontaneous
  Country: DK (occurrence: DK)
  Receive Date: 20140924
  Receipt Date: 20140924
  Transmission Date: 20150326
  Serious: Yes (Life-Threatening)
  Sender: FDA-Public Use
  Company Number: DK-ROCHE-1465622

PATIENT
  Age: 50 Year
  Sex: Female
  Weight: 78 kg

DRUGS (2)
  1. CORODIL [Interacting]
     Active Substance: DIPYRIDAMOLE
     Indication: HYPERTENSION
     Route: 048
  2. ACTILYSE [Suspect]
     Active Substance: ALTEPLASE
     Indication: CEREBRAL INFARCTION
     Route: 042
     Dates: start: 20140917

REACTIONS (2)
  - Drug interaction [Unknown]
  - Angioedema [Unknown]

NARRATIVE: CASE EVENT DATE: 20140917
